FAERS Safety Report 8802163 (Version 2)
Quarter: 2012Q4

REPORT INFORMATION
  Report Type: Report from Study
  Country: US (occurrence: US)
  Receive Date: 20120921
  Receipt Date: 20121015
  Transmission Date: 20130627
  Serious: Yes (Death, Other)
  Sender: FDA-Public Use
  Company Number: US-US-EMD SERONO, INC.-7162466

PATIENT
  Age: 62 None
  Sex: Female

DRUGS (1)
  1. REBIF [Suspect]
     Indication: MULTIPLE SCLEROSIS
     Route: 058
     Dates: start: 20021105

REACTIONS (7)
  - Septic shock [Fatal]
  - Epilepsy [Fatal]
  - Renal failure acute [Fatal]
  - Multiple sclerosis [Fatal]
  - Cellulitis [Unknown]
  - Skin ulcer [Not Recovered/Not Resolved]
  - Localised infection [Unknown]
